FAERS Safety Report 7053786-4 (Version None)
Quarter: 2010Q4

REPORT INFORMATION
  Report Type: 
  Country: None (occurrence: None)
  Receive Date: 20101020
  Receipt Date: 20100722
  Transmission Date: 20110411
  Serious: Yes (Congenital Anomaly)
  Sender: FDA-Public Use
  Company Number: B0679856A

PATIENT

DRUGS (3)
  1. ABACAVIR [Suspect]
     Dosage: 600MG PER DAY
     Dates: start: 20050809
  2. KALETRA [Suspect]
     Dosage: 2TAB TWICE PER DAY
     Dates: start: 20050809
  3. TENOFOVIR [Suspect]
     Dosage: 300MG PER DAY
     Dates: start: 20050809

REACTIONS (2)
  - CLEFT LIP AND PALATE [None]
  - DRUG EXPOSURE DURING PREGNANCY [None]
